FAERS Safety Report 14186461 (Version 3)
Quarter: 2017Q4

REPORT INFORMATION
  Report Type: Report from Study
  Country: FR (occurrence: FR)
  Receive Date: 20171114
  Receipt Date: 20171212
  Transmission Date: 20180321
  Serious: Yes (Hospitalization)
  Sender: FDA-Public Use
  Company Number: FR-ROCHE-2017301

PATIENT
  Age: 65 Year
  Sex: Female
  Weight: 53 kg

DRUGS (19)
  1. ESTREVA [Concomitant]
     Active Substance: ESTRADIOL
     Indication: MENOPAUSE
  2. ZELITREX [Concomitant]
     Active Substance: VALACYCLOVIR HYDROCHLORIDE
     Indication: PROPHYLAXIS
     Route: 065
     Dates: start: 20170711
  3. ZARZIO [Concomitant]
     Active Substance: FILGRASTIM
     Indication: NEUTROPENIA
     Route: 065
     Dates: start: 20171005, end: 20171009
  4. ZARZIO [Concomitant]
     Active Substance: FILGRASTIM
     Indication: PROPHYLAXIS
     Route: 065
     Dates: start: 20171015, end: 20171018
  5. RINOCLENIL [Concomitant]
     Active Substance: BECLOMETHASONE
     Indication: EAR INFECTION
     Route: 065
     Dates: start: 20170626, end: 201707
  6. DERINOX (FRANCE) [Concomitant]
     Route: 065
     Dates: start: 20171021, end: 20171023
  7. ARNICA [Concomitant]
     Active Substance: ARNICA MONTANA FLOWER
     Route: 065
     Dates: start: 20170919
  8. LENALIDOMIDE [Suspect]
     Active Substance: LENALIDOMIDE
     Indication: B-CELL LYMPHOMA
     Dosage: ADMINISTERED AT A DOSE OF 15-20 MG (DOSE MAY BE DE-ESCALATED TO 10 MG) DURING INDUCTION TREATMENT AN
     Route: 048
     Dates: start: 20170711
  9. ATEZOLIZUMAB. [Suspect]
     Active Substance: ATEZOLIZUMAB
     Indication: B-CELL LYMPHOMA
     Dosage: DAY 1 AND 15 OF CYCLES 2-6 DIVEN ?THE MOST RECENT DOSE PRIOR TO ADVERSE EVENT: 24/OCT/2017 AT A DOSE
     Route: 042
     Dates: start: 20170808
  10. BACTRIM [Concomitant]
     Active Substance: SULFAMETHOXAZOLE\TRIMETHOPRIM
     Indication: INFECTION PROPHYLAXIS
     Route: 065
     Dates: start: 20170711
  11. DERINOX (FRANCE) [Concomitant]
     Indication: NASOPHARYNGITIS
     Route: 065
     Dates: start: 20171004, end: 20171006
  12. AUGMENTIN [Concomitant]
     Active Substance: AMOXICILLIN\CLAVULANATE POTASSIUM
     Indication: NASOPHARYNGITIS
     Route: 065
     Dates: start: 20171017, end: 20171024
  13. OBINUTUZUMAB. [Suspect]
     Active Substance: OBINUTUZUMAB
     Indication: B-CELL LYMPHOMA
     Dosage: DAY 1,8 AND 15 OF THE FIRST CYCLE AND DAY 1 OF EACH SUBSEQUENT CYCLE DURING INDUCTION PHASE AND ON D
     Route: 042
     Dates: start: 20170711
  14. UTROGESTAN [Concomitant]
     Active Substance: PROGESTERONE
     Indication: MENOPAUSE
  15. INNOVAIR [Concomitant]
     Active Substance: BECLOMETHASONE DIPROPIONATE\FORMOTEROL
     Indication: NASOPHARYNGITIS
     Route: 065
     Dates: start: 20171017, end: 20171030
  16. LOVENOX [Concomitant]
     Active Substance: ENOXAPARIN SODIUM
     Indication: PROPHYLAXIS
     Route: 065
     Dates: start: 20170711
  17. PREDNISOLONE. [Concomitant]
     Active Substance: PREDNISOLONE
     Indication: NASOPHARYNGITIS
     Route: 065
     Dates: start: 20171023, end: 20171024
  18. LEDERFOLINE [Concomitant]
     Active Substance: LEUCOVORIN CALCIUM
     Indication: INFECTION PROPHYLAXIS
     Route: 065
     Dates: start: 20170711
  19. RHINOMAXIL [Concomitant]
     Active Substance: BECLOMETHASONE DIPROPIONATE
     Indication: NASOPHARYNGITIS
     Route: 065
     Dates: start: 20171017, end: 20171020

REACTIONS (1)
  - Lung infection [Recovered/Resolved]

NARRATIVE: CASE EVENT DATE: 20171029
